FAERS Safety Report 8254426-9 (Version None)
Quarter: 2012Q2

REPORT INFORMATION
  Report Type: 
  Country: None (occurrence: None)
  Receive Date: 20120403
  Receipt Date: 20120322
  Transmission Date: 20120825
  Serious: Yes (Other)
  Sender: FDA-Public Use
  Company Number: BR-AMGEN-BRASP2012019432

PATIENT
  Age: 72 Year
  Sex: Female
  Weight: 65 kg

DRUGS (10)
  1. ALENDRONATE SODIUM [Concomitant]
     Dosage: UNK
  2. ARIPIPRAZOLE [Concomitant]
     Dosage: UNK
  3. MELOXICAM [Concomitant]
     Dosage: UNK
  4. ENBREL [Suspect]
     Indication: RHEUMATOID ARTHRITIS
     Dosage: 25 MG, ONCE WEEKLY
     Route: 058
     Dates: start: 20080901, end: 20111201
  5. DEFLAZACORT [Concomitant]
     Dosage: UNK
  6. ARTROLIVE [Concomitant]
     Dosage: UNK
  7. ASPIRIN [Concomitant]
     Dosage: UNK
  8. LEFLUNOMIDE [Concomitant]
     Dosage: UNK
  9. LEXOTAN [Concomitant]
     Dosage: UNK
  10. SIMVASTATIN [Concomitant]
     Dosage: UNK

REACTIONS (2)
  - PNEUMONITIS [None]
  - IMMUNE SYSTEM DISORDER [None]
